FAERS Safety Report 5676884-6 (Version None)
Quarter: 2008Q1

REPORT INFORMATION
  Report Type: 
  Country: None (occurrence: None)
  Receive Date: 20080324
  Receipt Date: 20080317
  Transmission Date: 20080703
  Serious: Yes (Hospitalization)
  Sender: FDA-Public Use
  Company Number: GB-MERCK-0803GBR00068

PATIENT
  Age: 63 Year
  Sex: Male

DRUGS (13)
  1. ZOCOR [Suspect]
     Route: 048
     Dates: start: 20080120, end: 20080228
  2. CALCIUM CARBONATE AND CHOLECALCIFEROL [Concomitant]
     Route: 065
  3. DILTIAZEM HYDROCHLORIDE [Concomitant]
     Route: 065
  4. ASPIRIN [Concomitant]
     Route: 065
  5. BENDROFLUMETHIAZIDE [Concomitant]
     Route: 065
  6. CARBOCYSTEINE [Concomitant]
     Route: 065
  7. ACETAMINOPHEN AND CODEINE PHOSPHATE [Concomitant]
     Route: 065
  8. OMEPRAZOLE [Concomitant]
     Route: 065
  9. RAMIPRIL [Concomitant]
     Route: 065
  10. ALBUTEROL [Concomitant]
     Route: 065
  11. FLUTICASONE PROPIONATE AND SALMETEROL XINAFOATE [Concomitant]
     Route: 065
  12. THEOPHYLLINE [Concomitant]
     Route: 065
  13. TIOTROPIUM BROMIDE [Concomitant]
     Route: 065

REACTIONS (3)
  - BLOOD CREATINE PHOSPHOKINASE INCREASED [None]
  - CHEST PAIN [None]
  - MYALGIA [None]
